FAERS Safety Report 7630795-5 (Version None)
Quarter: 2011Q3

REPORT INFORMATION
  Report Type: 
  Country: None (occurrence: None)
  Receive Date: 20110723
  Receipt Date: 20110720
  Transmission Date: 20111222
  Serious: Yes (Death, Other)
  Sender: FDA-Public Use
  Company Number: US-ASTRAZENECA-2009UW10605

PATIENT
  Sex: Male
  Weight: 90.7 kg

DRUGS (5)
  1. SEROQUEL [Suspect]
     Route: 048
     Dates: start: 20060505
  2. SEROQUEL [Suspect]
     Indication: DEPRESSION
     Route: 048
     Dates: start: 19990101, end: 20070515
  3. GEODON [Concomitant]
     Dates: start: 20061101, end: 20070501
  4. ABILIFY [Concomitant]
     Dates: start: 20060101
  5. RISPERDAL [Concomitant]
     Dosage: 2-3 MG
     Dates: start: 20031101, end: 20080801

REACTIONS (3)
  - NEUROPATHY PERIPHERAL [None]
  - DIABETIC COMPLICATION [None]
  - TYPE 2 DIABETES MELLITUS [None]
